FAERS Safety Report 5663317-9 (Version None)
Quarter: 2008Q1

REPORT INFORMATION
  Report Type: 
  Country: None (occurrence: None)
  Receive Date: 20080313
  Receipt Date: 20080305
  Transmission Date: 20080703
  Serious: Yes (Hospitalization)
  Sender: FDA-Public Use
  Company Number: CA-ASTRAZENECA-2008UW04708

PATIENT
  Sex: Female

DRUGS (3)
  1. SEROQUEL [Suspect]
     Indication: SLEEP DISORDER
     Route: 048
     Dates: start: 20061101
  2. LITHIUM [Suspect]
     Dates: start: 20070201
  3. DIVALPROIC ACID [Concomitant]

REACTIONS (2)
  - RENAL DISORDER [None]
  - RESPIRATORY DISORDER [None]
